FAERS Safety Report 19200471 (Version 1)
Quarter: 2021Q2

REPORT INFORMATION
  Report Type: Spontaneous
  Country: US (occurrence: US)
  Receive Date: 20210430
  Receipt Date: 20210430
  Transmission Date: 20210717
  Serious: No
  Sender: FDA-Public Use
  Company Number: None

PATIENT
  Age: 21 Year
  Sex: Female
  Weight: 64.35 kg

DRUGS (2)
  1. DAILY MULTI VITAMIN [Concomitant]
  2. NORETHINDRONE ACETATE AND ETHINYL ESTRADIOL [Suspect]
     Active Substance: ETHINYL ESTRADIOL\NORETHINDRONE ACETATE
     Indication: ORAL CONTRACEPTION
     Dosage: ?          OTHER STRENGTH:MG/MCG;QUANTITY:1 TABLET(S);?
     Route: 048

REACTIONS (6)
  - Discomfort [None]
  - Product substitution issue [None]
  - Flatulence [None]
  - Hypertension [None]
  - Intermenstrual bleeding [None]
  - Abdominal discomfort [None]

NARRATIVE: CASE EVENT DATE: 20201210
